FAERS Safety Report 15143501 (Version 4)
Quarter: 2018Q3

REPORT INFORMATION
  Report Type: Report from Study
  Country: None (occurrence: US)
  Receive Date: 20180713
  Receipt Date: 20180831
  Transmission Date: 20181010
  Serious: Yes (Death, Life-Threatening, Hospitalization)
  Sender: FDA-Public Use
  Company Number: US-ABBVIE-18P-163-2412561-00

PATIENT
  Age: 73 Year
  Sex: Female
  Weight: 70 kg

DRUGS (7)
  1. ALLOPURINOL. [Concomitant]
     Active Substance: ALLOPURINOL
     Indication: PROPHYLAXIS
     Route: 048
     Dates: start: 20180425, end: 20180509
  2. VENETOCLAX. [Suspect]
     Active Substance: VENETOCLAX
     Indication: ACUTE MYELOID LEUKAEMIA
     Route: 048
     Dates: start: 20180503, end: 20180503
  3. VENETOCLAX. [Suspect]
     Active Substance: VENETOCLAX
     Route: 048
     Dates: start: 20180504, end: 20180504
  4. VENETOCLAX. [Suspect]
     Active Substance: VENETOCLAX
     Route: 048
     Dates: start: 20180505, end: 20180702
  5. AZACITIDINE. [Suspect]
     Active Substance: AZACITIDINE
     Indication: ACUTE MYELOID LEUKAEMIA
     Dosage: DAILY FOR 7 DAYS FOR A 28 DAY CYCLE
     Route: 058
     Dates: start: 20180503, end: 20180619
  6. NORMAL SALINE SOLUTION (0.9% SODIUM CHLORIDE) [Concomitant]
     Indication: PROPHYLAXIS
     Route: 042
     Dates: start: 20180425, end: 20180427
  7. LASIX [Concomitant]
     Active Substance: FUROSEMIDE
     Indication: OEDEMA PERIPHERAL
     Route: 042
     Dates: start: 20180505, end: 20180712

REACTIONS (2)
  - Respiratory failure [Fatal]
  - Cellulitis [Unknown]

NARRATIVE: CASE EVENT DATE: 20180705
